FAERS Safety Report 10481179 (Version 1)
Quarter: 2014Q3

REPORT INFORMATION
  Report Type: Spontaneous
  Country: US (occurrence: None)
  Receive Date: 20140908
  Receipt Date: 20140908
  Transmission Date: 20150326
  Serious: Yes (Other)
  Sender: FDA-Public Use
  Company Number: 391983

PATIENT
  Age: 49 Year
  Sex: Male
  Weight: 132.4 kg

DRUGS (7)
  1. NOVOLOG [Concomitant]
     Active Substance: INSULIN ASPART
  2. LANTUS [Concomitant]
     Active Substance: INSULIN GLARGINE
  3. LISINOPRIL (LISINOPRIL) [Concomitant]
     Active Substance: LISINOPRIL
  4. METFORMIN [Concomitant]
     Active Substance: METFORMIN HYDROCHLORIDE
  5. ASPIRIN (ACETYLSALICYLIC ACID) [Concomitant]
     Active Substance: ASPIRIN
  6. VICTOZA [Suspect]
     Active Substance: LIRAGLUTIDE
     Indication: TYPE 2 DIABETES MELLITUS
     Route: 058
     Dates: start: 20130724, end: 20131018
  7. PRAVASTATIN [Concomitant]
     Active Substance: PRAVASTATIN\PRAVASTATIN SODIUM

REACTIONS (1)
  - Pancreatitis acute [None]

NARRATIVE: CASE EVENT DATE: 20131017
